FAERS Safety Report 16913696 (Version 2)
Quarter: 2019Q4

REPORT INFORMATION
  Report Type: Spontaneous
  Country: US (occurrence: US)
  Receive Date: 20191014
  Receipt Date: 20191205
  Transmission Date: 20200122
  Serious: Yes (Other)
  Sender: FDA-Public Use
  Company Number: US-ELI_LILLY_AND_COMPANY-US201910001278

PATIENT
  Age: 58 Year
  Sex: Male

DRUGS (6)
  1. CIALIS [Suspect]
     Active Substance: TADALAFIL
     Indication: BENIGN PROSTATIC HYPERPLASIA
  2. CIALIS [Suspect]
     Active Substance: TADALAFIL
     Indication: ERECTILE DYSFUNCTION
     Dosage: 2.5MG, 5MG, 10MG, DAILY
     Route: 065
     Dates: start: 20100505, end: 20130918
  3. VIAGRA [Suspect]
     Active Substance: SILDENAFIL CITRATE
     Indication: BENIGN PROSTATIC HYPERPLASIA
  4. FLOMAX TAMSULOSIN HYDROCHLORIDE [Concomitant]
     Indication: DYSURIA
     Dosage: UNK, DAILY
     Dates: start: 2008, end: 2012
  5. VIAGRA [Suspect]
     Active Substance: SILDENAFIL CITRATE
     Indication: ERECTILE DYSFUNCTION
     Dosage: 50 MG, WEEKLY (1/W)
     Route: 065
     Dates: start: 20080131, end: 20090801
  6. LEVITRA [Concomitant]
     Active Substance: VARDENAFIL HYDROCHLORIDE
     Indication: ERECTILE DYSFUNCTION
     Dosage: 20 MG, ONCE TO TWICE PER WEEK
     Dates: start: 20081023, end: 20110701

REACTIONS (2)
  - Lentigo maligna [Recovered/Resolved]
  - Actinic keratosis [Unknown]
